FAERS Safety Report 19111903 (Version 1)
Quarter: 2021Q2

REPORT INFORMATION
  Report Type: Spontaneous
  Country: US (occurrence: US)
  Receive Date: 20210408
  Receipt Date: 20210408
  Transmission Date: 20210717
  Serious: Yes (Other)
  Sender: FDA-Public Use
  Company Number: US-SYMOGEN - AB-202000039

PATIENT
  Age: 15 Year
  Sex: Male

DRUGS (2)
  1. GM?CSF [Suspect]
     Active Substance: GRANULOCYTE-MACROPHAGE COLONY-STIMULATING FACTOR
     Indication: NEUROBLASTOMA
     Dosage: HE HAS COMPLETED 3 CYCLES OF TREATMENT WITH 14 TOTAL DOSES EACH CYCLE.
     Route: 065
  2. GM?CSF [Suspect]
     Active Substance: GRANULOCYTE-MACROPHAGE COLONY-STIMULATING FACTOR
     Indication: NEUROBLASTOMA
     Dosage: CURRENTLY HE IS IN HIS 4TH CYCLE
     Route: 065

REACTIONS (3)
  - Urticaria [Recovered/Resolved]
  - Bronchospasm [Recovered/Resolved]
  - Angioedema [Recovered/Resolved]
